FAERS Safety Report 4971593-0 (Version None)
Quarter: 2006Q2

REPORT INFORMATION
  Report Type: 
  Country: None (occurrence: None)
  Receive Date: 20060407
  Receipt Date: 20060329
  Transmission Date: 20061013
  Serious: Yes (Other)
  Sender: FDA-Public Use
  Company Number: 2006043076

PATIENT
  Age: 21 Year
  Sex: Male
  Weight: 115.6672 kg

DRUGS (1)
  1. LISTERINE (MENTHOL, METHYL SALICYLATE, EUCALYPTOL, THYMOL) [Suspect]
     Indication: DEPRESSION
     Dosage: THE WHOLE BOTTLE ONCE, ORAL
     Route: 048
     Dates: start: 20060329, end: 20060329

REACTIONS (2)
  - FEELING DRUNK [None]
  - INTENTIONAL DRUG MISUSE [None]
